FAERS Safety Report 7108506-1 (Version None)
Quarter: 2010Q4

REPORT INFORMATION
  Report Type: 
  Country: None (occurrence: None)
  Receive Date: 20101117
  Receipt Date: 20100722
  Transmission Date: 20110411
  Serious: No
  Sender: FDA-Public Use
  Company Number: A0871894A

PATIENT
  Age: 70 Year
  Sex: Male

DRUGS (5)
  1. VOTRIENT [Suspect]
     Indication: RENAL CELL CARCINOMA STAGE IV
     Dosage: 800MG PER DAY
     Route: 048
     Dates: start: 20100517, end: 20100722
  2. PERCOCET [Concomitant]
  3. ANTI-CHOLESTEROL MEDICATION [Concomitant]
  4. BLOOD PRESSURE MED [Concomitant]
  5. DIABETES MEDICATION [Concomitant]

REACTIONS (2)
  - DIARRHOEA [None]
  - WEIGHT DECREASED [None]
